FAERS Safety Report 6448625-6 (Version None)
Quarter: 2009Q4

REPORT INFORMATION
  Report Type: 
  Country: None (occurrence: None)
  Receive Date: 20091120
  Receipt Date: 20091112
  Transmission Date: 20100525
  Serious: Yes (Other)
  Sender: FDA-Public Use
  Company Number: US-PFIZER INC-2009297907

PATIENT
  Sex: Female
  Weight: 72.574 kg

DRUGS (4)
  1. CELEBREX [Suspect]
     Indication: RHEUMATOID ARTHRITIS
     Dates: start: 19980101, end: 19990101
  2. PREDNISONE [Suspect]
     Indication: PAIN IN EXTREMITY
     Dosage: 80 MG, 3X/DAY
  3. PREDNISONE [Suspect]
     Indication: BACK PAIN
  4. CHANTIX [Suspect]
     Indication: SMOKING CESSATION THERAPY
     Dosage: 1 MG, 2X/DAY
     Dates: start: 20090501, end: 20090801

REACTIONS (7)
  - ABNORMAL DREAMS [None]
  - CHRONIC OBSTRUCTIVE PULMONARY DISEASE [None]
  - DIABETES MELLITUS [None]
  - ENDOCRINE DISORDER [None]
  - FATIGUE [None]
  - MUSCLE SPASMS [None]
  - PAIN [None]
